FAERS Safety Report 10371425 (Version 1)
Quarter: 2014Q3

REPORT INFORMATION
  Report Type: Spontaneous
  Country: JP (occurrence: JP)
  Receive Date: 20140808
  Receipt Date: 20140808
  Transmission Date: 20150326
  Serious: No
  Sender: FDA-Public Use
  Company Number: PHHY2009JP072156

PATIENT
  Age: 65 Year
  Sex: Male

DRUGS (2)
  1. TASIGNA [Suspect]
     Active Substance: NILOTINIB
     Indication: CHRONIC MYELOID LEUKAEMIA
     Dosage: 800 MG, PER DAY
  2. HYDREA [Concomitant]
     Active Substance: HYDROXYUREA

REACTIONS (2)
  - Rash [Unknown]
  - Jaundice [Unknown]

NARRATIVE: CASE EVENT DATE: 200905
